FAERS Safety Report 8500111-5 (Version None)
Quarter: 2012Q3

REPORT INFORMATION
  Report Type: 
  Country: None (occurrence: None)
  Receive Date: 20120710
  Receipt Date: 20120703
  Transmission Date: 20120928
  Serious: Yes (Hospitalization, Other)
  Sender: FDA-Public Use
  Company Number: US-BAYER-2012-007541

PATIENT
  Age: 22 Year
  Sex: Female

DRUGS (3)
  1. KEPPRA [Concomitant]
     Indication: SIMPLE PARTIAL SEIZURES
  2. YAZ [Suspect]
     Dosage: UNK
     Dates: start: 20081101, end: 20100127
  3. PROPOFOL [Concomitant]

REACTIONS (5)
  - INJURY [None]
  - PAIN [None]
  - SUPERIOR SAGITTAL SINUS THROMBOSIS [None]
  - CEREBROVASCULAR ACCIDENT [None]
  - EMOTIONAL DISTRESS [None]
